FAERS Safety Report 22324186 (Version 1)
Quarter: 2023Q2

REPORT INFORMATION
  Report Type: Spontaneous
  Country: US (occurrence: None)
  Receive Date: 20230512
  Receipt Date: 20230512
  Transmission Date: 20230721
  Serious: No
  Sender: FDA-Public Use
  Company Number: None

PATIENT
  Age: 18 Year
  Sex: Male
  Weight: 60.6 kg

DRUGS (1)
  1. DUPIXENT [Suspect]
     Active Substance: DUPILUMAB
     Indication: Eosinophilic oesophagitis
     Dosage: OTHER FREQUENCY : WEEKLY;?
     Route: 058
     Dates: start: 20230505, end: 20230512

REACTIONS (5)
  - Injection site pain [None]
  - Device leakage [None]
  - Accidental exposure to product [None]
  - Exposure via skin contact [None]
  - Injection site urticaria [None]

NARRATIVE: CASE EVENT DATE: 20230505
